FAERS Safety Report 13546731 (Version 3)
Quarter: 2018Q1

REPORT INFORMATION
  Report Type: Spontaneous
  Country: US (occurrence: US)
  Receive Date: 20170515
  Receipt Date: 20180102
  Transmission Date: 20180508
  Serious: No
  Sender: FDA-Public Use
  Company Number: US-VIFOR (INTERNATIONAL) INC.-VIT-2017-03272

PATIENT
  Age: 83 Year
  Sex: Female
  Weight: 79 kg

DRUGS (7)
  1. VELTASSA [Suspect]
     Active Substance: PATIROMER
     Indication: HYPERKALAEMIA
     Route: 048
     Dates: start: 20160927
  2. TRAMADOL. [Concomitant]
     Active Substance: TRAMADOL
  3. SODIUM BICARBONATE. [Concomitant]
     Active Substance: SODIUM BICARBONATE
  4. HYDRALAZINE [Concomitant]
     Active Substance: HYDRALAZINE HYDROCHLORIDE
  5. INSULIN [Concomitant]
     Active Substance: INSULIN NOS
  6. ACETYLSALICYLIC ACID [Concomitant]
     Active Substance: ASPIRIN
  7. IRON [Concomitant]
     Active Substance: IRON

REACTIONS (3)
  - Skin exfoliation [Not Recovered/Not Resolved]
  - Drug dose omission [Unknown]
  - Rash [Not Recovered/Not Resolved]

NARRATIVE: CASE EVENT DATE: 201708
